FAERS Safety Report 18917731 (Version 2)
Quarter: 2021Q2

REPORT INFORMATION
  Report Type: Spontaneous
  Country: US (occurrence: US)
  Receive Date: 20210219
  Receipt Date: 20210607
  Transmission Date: 20210717
  Serious: No
  Sender: FDA-Public Use
  Company Number: US-PFIZER INC-2021153820

PATIENT
  Age: 69 Year
  Sex: Female

DRUGS (2)
  1. IBRANCE [Suspect]
     Active Substance: PALBOCICLIB
     Indication: BREAST CANCER FEMALE
     Dosage: 125 MG, CYCLIC (ONCE DAILY (QD) X 21 DAYS)
     Dates: start: 20200414
  2. IBRANCE [Suspect]
     Active Substance: PALBOCICLIB
     Indication: IRON DEFICIENCY ANAEMIA

REACTIONS (2)
  - Constipation [Not Recovered/Not Resolved]
  - Dyspnoea [Unknown]
